FAERS Safety Report 10171116 (Version 1)
Quarter: 2014Q2

REPORT INFORMATION
  Report Type: Spontaneous
  Country: US (occurrence: None)
  Receive Date: 20140501
  Receipt Date: 20140501
  Transmission Date: 20141212
  Serious: No
  Sender: FDA-Public Use
  Company Number: PHEH2014US002320

PATIENT
  Sex: Female

DRUGS (1)
  1. ARCAPTA (INDACATEROL) UNKNOWN [Suspect]

REACTIONS (3)
  - Dyspnoea [None]
  - Chronic obstructive pulmonary disease [None]
  - Dysarthria [None]
